FAERS Safety Report 4757412-6 (Version None)
Quarter: 2005Q3

REPORT INFORMATION
  Report Type: 
  Country: None (occurrence: None)
  Receive Date: 20050831
  Receipt Date: 20050817
  Transmission Date: 20060218
  Serious: Yes (Hospitalization)
  Sender: FDA-Public Use
  Company Number: PHNR2005AU01248

PATIENT
  Age: 69 Year
  Sex: Female

DRUGS (2)
  1. GLEEVEC [Suspect]
     Indication: CHRONIC MYELOID LEUKAEMIA
     Dosage: 300 MG, QD
     Dates: start: 20040114, end: 20040128
  2. DONEPEZIL HYDROCHLORIDE [Concomitant]
     Indication: PRESENILE DEMENTIA
     Dosage: 5 MG, QD
     Route: 048
     Dates: start: 20031101

REACTIONS (8)
  - ABDOMINAL PAIN [None]
  - ALVEOLITIS ALLERGIC [None]
  - COUGH [None]
  - DIARRHOEA [None]
  - INTERSTITIAL LUNG DISEASE [None]
  - PNEUMONITIS [None]
  - PYREXIA [None]
  - RESPIRATORY FAILURE [None]
